FAERS Safety Report 15675890 (Version 1)
Quarter: 2018Q4

REPORT INFORMATION
  Report Type: Other
  Country: US (occurrence: US)
  Receive Date: 20181130
  Receipt Date: 20181130
  Transmission Date: 20190205
  Serious: Yes (Life-Threatening, Hospitalization, Disabling)
  Sender: FDA-Public Use
  Company Number: US-NOSTRUM LABORATORIES, INC.-2059465

PATIENT
  Age: 17 Year
  Sex: Female

DRUGS (1)
  1. NITROFURANTOIN. [Suspect]
     Active Substance: NITROFURANTOIN
     Indication: URINARY TRACT INFECTION
     Route: 048

REACTIONS (4)
  - Toxic epidermal necrolysis [Recovered/Resolved with Sequelae]
  - Tracheostomy [Unknown]
  - Physical disability [Unknown]
  - Stevens-Johnson syndrome [Recovered/Resolved with Sequelae]
